FAERS Safety Report 24052020 (Version 1)
Quarter: 2024Q3

REPORT INFORMATION
  Report Type: Report from Study
  Country: DE (occurrence: DE)
  Receive Date: 20240704
  Receipt Date: 20240704
  Transmission Date: 20241016
  Serious: Yes (Other)
  Sender: ABBVIE
  Company Number: DE-JNJFOC-20230861531

PATIENT
  Age: 80 Year
  Sex: Male

DRUGS (4)
  1. IMBRUVICA [Suspect]
     Active Substance: IBRUTINIB
     Indication: Chronic lymphocytic leukaemia
     Route: 048
  2. IMBRUVICA [Suspect]
     Active Substance: IBRUTINIB
     Indication: Chronic lymphocytic leukaemia
     Route: 048
     Dates: start: 20230425, end: 20230907
  3. IMBRUVICA [Suspect]
     Active Substance: IBRUTINIB
     Indication: Chronic lymphocytic leukaemia
     Route: 048
  4. IMBRUVICA [Suspect]
     Active Substance: IBRUTINIB
     Indication: Chronic lymphocytic leukaemia
     Route: 048

REACTIONS (13)
  - Tumour lysis syndrome [Recovered/Resolved]
  - Blood phosphorus increased [Recovered/Resolved]
  - Blood uric acid increased [Recovered/Resolved]
  - Diarrhoea [Recovered/Resolved]
  - Thrombocytopenia [Recovering/Resolving]
  - Blood lactate dehydrogenase increased [Recovered/Resolved]
  - Tumour lysis syndrome [Recovered/Resolved]
  - Haemorrhage [Recovered/Resolved]
  - Leukopenia [Recovering/Resolving]
  - Skin lesion [Recovered/Resolved]
  - Blood potassium decreased [Recovered/Resolved]
  - Blood creatinine increased [Recovered/Resolved]
  - Haematoma [Recovered/Resolved]

NARRATIVE: CASE EVENT DATE: 20230619
